FAERS Safety Report 19683184 (Version 2)
Quarter: 2021Q3

REPORT INFORMATION
  Report Type: Spontaneous
  Country: JP (occurrence: JP)
  Receive Date: 20210811
  Receipt Date: 20210901
  Transmission Date: 20211014
  Serious: Yes (Other)
  Sender: FDA-Public Use
  Company Number: JP-ORION CORPORATION ORION PHARMA-ENTC2021-0200

PATIENT
  Age: 79 Year
  Sex: Female

DRUGS (3)
  1. STALEVO [Suspect]
     Active Substance: CARBIDOPA\ENTACAPONE\LEVODOPA
     Indication: PARKINSON^S DISEASE
     Dosage: 1DF: LEVODOPA 100 MG, CARBIDOPA 10.8 MG (10 MG AS CARBIDOPA), ENTACAPONE 100 MG, 300 DAILY;?1DF: LEV
     Route: 048
  2. FP?OD [Concomitant]
     Active Substance: SELEGILINE HYDROCHLORIDE
     Route: 065
  3. NOURIAST [Concomitant]
     Active Substance: ISTRADEFYLLINE
     Route: 065

REACTIONS (1)
  - Parkinson^s disease [Recovering/Resolving]

NARRATIVE: CASE EVENT DATE: 20210727
